FAERS Safety Report 13828782 (Version 1)
Quarter: 2017Q3

REPORT INFORMATION
  Report Type: Spontaneous
  Country: FR (occurrence: FR)
  Receive Date: 20170803
  Receipt Date: 20170803
  Transmission Date: 20171127
  Serious: Yes (Hospitalization)
  Sender: FDA-Public Use
  Company Number: FR-TEVA-793217ROM

PATIENT
  Age: 65 Year
  Sex: Female
  Weight: 114 kg

DRUGS (16)
  1. SORIATANE [Suspect]
     Active Substance: ACITRETIN
     Dosage: 20 MILLIGRAM DAILY;
     Route: 048
     Dates: start: 20150402, end: 20150408
  2. SORIATANE [Suspect]
     Active Substance: ACITRETIN
     Dosage: 30 MILLIGRAM DAILY;
     Route: 048
     Dates: start: 20150409, end: 20150415
  3. MONOPROST [Concomitant]
     Active Substance: LATANOPROST
     Dosage: 50 MCG/ML - 1 DROP IN EACH EYE
     Route: 047
     Dates: start: 201501
  4. SORIATANE [Suspect]
     Active Substance: ACITRETIN
     Indication: PSORIASIS
     Dosage: 10 MILLIGRAM DAILY;
     Route: 048
     Dates: start: 20131025, end: 20150401
  5. PULMICORT TURBUHALER [Concomitant]
     Active Substance: BUDESONIDE
     Dosage: 2 INHALATIONS/DAY
     Route: 055
     Dates: start: 20120418
  6. DOLIPRANE [Concomitant]
     Active Substance: ACETAMINOPHEN
     Route: 048
  7. XARELTO [Concomitant]
     Active Substance: RIVAROXABAN
     Dates: start: 201412
  8. COAPROVEL [Concomitant]
     Active Substance: HYDROCHLOROTHIAZIDE\IRBESARTAN
     Dosage: 15 MILLIGRAM DAILY;
     Route: 048
     Dates: start: 2008
  9. GLYCEROL\PARAFFIN [Concomitant]
     Active Substance: GLYCERIN\PARAFFIN
     Route: 003
  10. SORIATANE [Suspect]
     Active Substance: ACITRETIN
     Dosage: 40 MILLIGRAM DAILY;
     Route: 048
     Dates: start: 20150416, end: 20150422
  11. DAIVOBET [Concomitant]
     Active Substance: BETAMETHASONE DIPROPIONATE\CALCIPOTRIENE
  12. METOJECT [Suspect]
     Active Substance: METHOTREXATE SODIUM
     Indication: PSORIASIS
     Dosage: 2.142 MILLIGRAM DAILY;
     Route: 058
     Dates: start: 20150604
  13. SPECIAFOLDINE [Concomitant]
     Active Substance: FOLIC ACID
     Route: 048
     Dates: start: 20150604
  14. TRAMADOL. [Concomitant]
     Active Substance: TRAMADOL
     Route: 048
  15. SORIATANE [Suspect]
     Active Substance: ACITRETIN
     Dosage: 50 MILLIGRAM DAILY;
     Route: 048
     Dates: start: 20150423
  16. THIOCOLCHICOSIDE [Concomitant]
     Active Substance: THIOCOLCHICOSIDE
     Route: 048

REACTIONS (4)
  - Inflammatory marker increased [Unknown]
  - Dermo-hypodermitis [Recovering/Resolving]
  - Pleural effusion [Unknown]
  - Intertrigo [Unknown]

NARRATIVE: CASE EVENT DATE: 20161107
